FAERS Safety Report 6430141-9 (Version None)
Quarter: 2009Q4

REPORT INFORMATION
  Report Type: 
  Country: None (occurrence: None)
  Receive Date: 20091106
  Receipt Date: 20091103
  Transmission Date: 20100525
  Serious: Yes (Other)
  Sender: FDA-Public Use
  Company Number: FR-BAYER-200937844GPV

PATIENT
  Sex: Female

DRUGS (1)
  1. IZILOX [Suspect]
     Indication: SINUSITIS
     Route: 065

REACTIONS (4)
  - GENERAL PHYSICAL HEALTH DETERIORATION [None]
  - NAUSEA [None]
  - TREMOR [None]
  - VERTIGO [None]
